FAERS Safety Report 4651007-0 (Version None)
Quarter: 2005Q2

REPORT INFORMATION
  Report Type: 
  Country: None (occurrence: None)
  Receive Date: 20050429
  Receipt Date: 20050420
  Transmission Date: 20051028
  Serious: Yes (Hospitalization, Other)
  Sender: FDA-Public Use
  Company Number: 2005062964

PATIENT
  Sex: Male
  Weight: 88.4514 kg

DRUGS (3)
  1. VIAGRA [Suspect]
     Indication: ERECTILE DYSFUNCTION
     Dosage: 50 MG (50 MG, AS NECESSARY), ORAL
     Route: 048
     Dates: start: 20001201
  2. ATORVASTATIN CALCIUM [Concomitant]
  3. LOPRESSOR [Concomitant]

REACTIONS (3)
  - CARDIAC OPERATION [None]
  - DRUG EFFECT DECREASED [None]
  - NERVE INJURY [None]
